FAERS Safety Report 9989943 (Version 5)
Quarter: 2014Q2

REPORT INFORMATION
  Report Type: Spontaneous
  Country: AU (occurrence: None)
  Receive Date: 20131115
  Receipt Date: 20140630
  Transmission Date: 20141212
  Serious: Yes (Hospitalization)
  Sender: FDA-Public Use
  Company Number: 2013AU002705

PATIENT
  Age: 65 Year
  Sex: Male
  Weight: 75.8 kg

DRUGS (12)
  1. PONATINIB [Suspect]
     Indication: CHRONIC MYELOID LEUKAEMIA
     Route: 048
     Dates: start: 20110504
  2. NEXIUM (ESOMEPRAZOLE MAGNESIUM) [Concomitant]
  3. CHLORSIG [Concomitant]
  4. COLOXYL WITH SENNA (DOCUSATE SODIUM, SENNOSIDE A+B) [Concomitant]
  5. ANGININE (GLYCERYL TRINITRATE) [Concomitant]
  6. LYCINATE (GLYCERYL TRINITRATE) [Concomitant]
  7. PERINDOPRIL ARGININE (PERINDOPRIL ARGININE) [Concomitant]
  8. LIPITOR (ATORVASTATIN CALCIUM) [Concomitant]
  9. DIPYRIDAMOLE (DIPYRIDAMOLE) [Concomitant]
  10. SUSTAGEN (ASCORBIC ACID, CALCIUM PANTOTHENATE, CYANOCOBALAMIN, ERGOCALCIFEROL, NICOTINAMIDE, PYRIDOXINE HYDROCHLORIDE, RETINOL, RIBOFLAVIN, THIAMINE HYDROCHLORIDE, TOCOPHERYL ACETATE) [Concomitant]
  11. FERGON (FERROUS GLUCONATE) [Concomitant]
  12. ASPIRIN (ASPIRIN) [Concomitant]

REACTIONS (4)
  - Colitis [None]
  - Abscess intestinal [None]
  - Ischaemic ulcer [None]
  - Colon neoplasm [None]
